FAERS Safety Report 18362951 (Version 1)
Quarter: 2020Q4

REPORT INFORMATION
  Report Type: Spontaneous
  Country: US (occurrence: US)
  Receive Date: 20201008
  Receipt Date: 20201008
  Transmission Date: 20210114
  Serious: Yes (Other)
  Sender: FDA-Public Use
  Company Number: US-FRESENIUS MEDICAL CARE RENAL THERAPIES GROUP-FMC-2010-001195

PATIENT
  Age: 36 Year
  Sex: Female
  Weight: 87.5 kg

DRUGS (2)
  1. DELFLEX WITH DEXTROSE 2.5% LOW MAGNESIUM LOW CALCIUM [Suspect]
     Active Substance: CALCIUM CHLORIDE\DEXTROSE\MAGNESIUM CHLORIDE\SODIUM CHLORIDE\SODIUM LACTATE
     Indication: END STAGE RENAL DISEASE
     Dosage: AT 2600 ML FOR 5 CYCLES WITH A LAST FILL OF 1500 ML AND NO DAYTIME EXCHANGE, SINCE JUNE 2018
     Route: 033
  2. DELFLEX WITH DEXTROSE 4.25% LOW MAGNESIUM LOW CALCIUM [Suspect]
     Active Substance: CALCIUM CHLORIDE\DEXTROSE\MAGNESIUM CHLORIDE\SODIUM CHLORIDE\SODIUM LACTATE
     Indication: END STAGE RENAL DISEASE
     Dosage: AT 2600 ML FOR 5 CYCLES WITH A LAST FILL OF 1500 ML AND NO DAYTIME EXCHANGE, SINCE JUNE 2018
     Route: 033

REACTIONS (1)
  - Peritonitis bacterial [Recovering/Resolving]
